FAERS Safety Report 6747654-2 (Version None)
Quarter: 2010Q2

REPORT INFORMATION
  Report Type: 
  Country: None (occurrence: None)
  Receive Date: 20100528
  Receipt Date: 20100222
  Transmission Date: 20101027
  Serious: No
  Sender: FDA-Public Use
  Company Number: US-ASTRAZENECA-2010SE08618

PATIENT
  Age: 84 Year
  Sex: Female

DRUGS (3)
  1. PRILOSEC OTC [Suspect]
     Route: 048
  2. THYROID THERAPY [Concomitant]
     Dosage: UNKNOWN
  3. DIURETICS [Concomitant]
     Dosage: UNKNOWN

REACTIONS (2)
  - AGEUSIA [None]
  - WEIGHT DECREASED [None]
